FAERS Safety Report 5152309-4 (Version None)
Quarter: 2006Q4

REPORT INFORMATION
  Report Type: 
  Country: None (occurrence: None)
  Receive Date: 20061116
  Receipt Date: 20061024
  Transmission Date: 20070319
  Serious: Yes (Hospitalization)
  Sender: FDA-Public Use
  Company Number: DE-ROCHE-468157

PATIENT
  Age: 67 Year
  Sex: Female
  Weight: 55 kg

DRUGS (6)
  1. CAPECITABINE [Suspect]
     Dosage: ON DAY 1-14 EVERY 3 WEEKS.
     Route: 048
     Dates: start: 20061003, end: 20061024
  2. CAPECITABINE [Suspect]
     Route: 048
     Dates: start: 20061031
  3. FRAXIPARIN [Concomitant]
     Dates: start: 20061022
  4. ENALAPRIL MALEATE [Concomitant]
     Dates: start: 20020615
  5. BISOPROLOL FUMARATE [Concomitant]
  6. OMEPRAZOLE [Concomitant]
     Dates: start: 20061027

REACTIONS (3)
  - DUODENAL ULCER [None]
  - GASTROENTERITIS [None]
  - GENERAL PHYSICAL HEALTH DETERIORATION [None]
